FAERS Safety Report 19645459 (Version 1)
Quarter: 2021Q3

REPORT INFORMATION
  Report Type: Spontaneous
  Country: US (occurrence: US)
  Receive Date: 20210730
  Receipt Date: 20210730
  Transmission Date: 20211014
  Serious: Yes (Hospitalization)
  Sender: FDA-Public Use
  Company Number: None

PATIENT
  Age: 77 Year
  Sex: Male

DRUGS (21)
  1. BUDESONIDE. [Concomitant]
     Active Substance: BUDESONIDE
  2. PERPHENAZINE. [Concomitant]
     Active Substance: PERPHENAZINE
  3. MESALAMINE. [Concomitant]
     Active Substance: MESALAMINE
  4. CHLORTHALIDONE. [Concomitant]
     Active Substance: CHLORTHALIDONE
  5. LEVOTHYROXINE. [Concomitant]
     Active Substance: LEVOTHYROXINE
  6. TERAZOSIN [Concomitant]
     Active Substance: TERAZOSIN HYDROCHLORIDE
  7. POTASSIUM CHLORIDE. [Concomitant]
     Active Substance: POTASSIUM CHLORIDE
  8. FINASTERIDE. [Concomitant]
     Active Substance: FINASTERIDE
  9. RANOLAZINE. [Concomitant]
     Active Substance: RANOLAZINE
  10. LOSARTAN. [Concomitant]
     Active Substance: LOSARTAN
  11. PREDNISONE. [Concomitant]
     Active Substance: PREDNISONE
  12. NEXIUM [Concomitant]
     Active Substance: ESOMEPRAZOLE MAGNESIUM
  13. AMLODIPINE [Concomitant]
     Active Substance: AMLODIPINE BESYLATE
  14. MONTELUKAST [Concomitant]
     Active Substance: MONTELUKAST SODIUM
  15. WARFARIN [Concomitant]
     Active Substance: WARFARIN
  16. LOPERAMIDE [Concomitant]
     Active Substance: LOPERAMIDE
  17. HUMIRA [Suspect]
     Active Substance: ADALIMUMAB
     Indication: CROHN^S DISEASE
     Dosage: ?          OTHER FREQUENCY:ON DAY 1;?
     Route: 058
     Dates: start: 20201210
  18. DIFICID [Concomitant]
     Active Substance: FIDAXOMICIN
  19. METOPROLOL. [Concomitant]
     Active Substance: METOPROLOL
  20. AMITRIPTYLIN [Concomitant]
     Active Substance: AMITRIPTYLINE
  21. NITROGLYCERIN. [Concomitant]
     Active Substance: NITROGLYCERIN

REACTIONS (3)
  - Crohn^s disease [None]
  - Weight decreased [None]
  - Diarrhoea [None]

NARRATIVE: CASE EVENT DATE: 20210730
